FAERS Safety Report 9088840 (Version 2)
Quarter: 2013Q2

REPORT INFORMATION
  Report Type: Report from Study
  Country: JP (occurrence: JP)
  Receive Date: 20130201
  Receipt Date: 20130418
  Transmission Date: 20140414
  Serious: Yes (Death)
  Sender: FDA-Public Use
  Company Number: JP-AMGEN-JPNCT2013007223

PATIENT
  Age: 84 Year
  Sex: Female

DRUGS (11)
  1. DARBEPOETIN ALFA [Suspect]
     Indication: NEPHROGENIC ANAEMIA
     Dosage: 40 MUG, QWK
     Route: 040
     Dates: start: 20120214, end: 20120312
  2. DARBEPOETIN ALFA [Suspect]
     Dosage: 40 MUG, QWK
     Route: 040
     Dates: start: 20120326, end: 20120409
  3. EQUA [Concomitant]
     Dosage: UNK
     Route: 048
  4. BASEN [Concomitant]
     Dosage: UNK
     Route: 048
  5. LASIX [Concomitant]
     Dosage: UNK
     Route: 048
  6. HALCION [Concomitant]
     Dosage: UNK
     Route: 048
  7. TAKEPRON [Concomitant]
     Dosage: UNK
     Route: 048
  8. SIGMART [Concomitant]
     Dosage: UNK
     Route: 048
  9. DIOVAN [Concomitant]
     Dosage: UNK
     Route: 048
  10. NORVASC [Concomitant]
     Dosage: UNK
     Route: 048
  11. GLUFAST [Concomitant]
     Dosage: UNK
     Route: 048

REACTIONS (1)
  - Thrombocytopenia [Fatal]
